FAERS Safety Report 5363716-9 (Version None)
Quarter: 2007Q2

REPORT INFORMATION
  Report Type: 
  Country: None (occurrence: None)
  Receive Date: 20070620
  Receipt Date: 20070611
  Transmission Date: 20071010
  Serious: Yes (Hospitalization, Other)
  Sender: FDA-Public Use
  Company Number: PHBS2006JP06347

PATIENT
  Age: 34 Year
  Sex: Female

DRUGS (3)
  1. NEORAL [Suspect]
     Indication: RENAL TRANSPLANT
     Dosage: 150 MG/DAY
     Route: 048
     Dates: start: 20050218
  2. IMURAN [Concomitant]
     Indication: RENAL TRANSPLANT
     Dosage: 50 MG/DAY
     Route: 048
     Dates: start: 20050218
  3. PREDNISOLONE [Concomitant]
     Indication: RENAL TRANSPLANT
     Dosage: 5 MG/DAY
     Route: 048
     Dates: start: 20050218

REACTIONS (8)
  - ABORTION MISSED [None]
  - BENIGN HYDATIDIFORM MOLE [None]
  - BLOOD HUMAN CHORIONIC GONADOTROPIN INCREASED [None]
  - CHORIOCARCINOMA [None]
  - DRUG EXPOSURE DURING PREGNANCY [None]
  - FALLOPIAN TUBE OBSTRUCTION [None]
  - POST PROCEDURAL HAEMORRHAGE [None]
  - UTERINE DILATION AND CURETTAGE [None]
